FAERS Safety Report 21618485 (Version 3)
Quarter: 2022Q4

REPORT INFORMATION
  Report Type: Spontaneous
  Country: DE (occurrence: DE)
  Receive Date: 20221119
  Receipt Date: 20221227
  Transmission Date: 20230112
  Serious: Yes (Hospitalization)
  Sender: FDA-Public Use
  Company Number: DE-ROCHE-3213592

PATIENT
  Age: 63 Year
  Sex: Male

DRUGS (18)
  1. ETOPOSIDE [Suspect]
     Active Substance: ETOPOSIDE
     Indication: Diffuse large B-cell lymphoma
     Dosage: 210 MG
     Route: 042
     Dates: start: 20220916, end: 20220918
  2. ETOPOSIDE [Suspect]
     Active Substance: ETOPOSIDE
     Dosage: 210 MG
     Route: 042
     Dates: start: 20221013, end: 20221016
  3. ETOPOSIDE [Suspect]
     Active Substance: ETOPOSIDE
     Dosage: 210 MG (RECENT DOSE RECEIVED ON 12 NOV 2022)
     Route: 042
     Dates: start: 20221109
  4. CARBOPLATIN [Suspect]
     Active Substance: CARBOPLATIN
     Indication: Diffuse large B-cell lymphoma
     Dosage: 650 MG
     Route: 042
     Dates: start: 20220917, end: 20220917
  5. CARBOPLATIN [Suspect]
     Active Substance: CARBOPLATIN
     Dosage: 650 MG
     Route: 042
     Dates: start: 20221014, end: 20221014
  6. CARBOPLATIN [Suspect]
     Active Substance: CARBOPLATIN
     Dosage: 630 MG (RECENT DOSE ON 10 NOV 2022)
     Route: 042
     Dates: start: 20221110
  7. RITUXIMAB [Suspect]
     Active Substance: RITUXIMAB
     Indication: Diffuse large B-cell lymphoma
     Dosage: 790 MG
     Route: 042
     Dates: start: 20220916, end: 20220916
  8. RITUXIMAB [Suspect]
     Active Substance: RITUXIMAB
     Dosage: 790 MG
     Route: 042
     Dates: start: 20221013, end: 20221013
  9. RITUXIMAB [Suspect]
     Active Substance: RITUXIMAB
     Dosage: 790 MG (MOST RECENT DOSE ON 09 NOV 2022)
     Route: 042
     Dates: start: 20221109
  10. IFOSFAMIDE [Suspect]
     Active Substance: IFOSFAMIDE
     Indication: Diffuse large B-cell lymphoma
     Dosage: 10680 MG
     Route: 042
     Dates: start: 20220917, end: 20220918
  11. IFOSFAMIDE [Suspect]
     Active Substance: IFOSFAMIDE
     Dosage: 10600 MG
     Route: 042
     Dates: start: 20221014, end: 20221015
  12. IFOSFAMIDE [Suspect]
     Active Substance: IFOSFAMIDE
     Dosage: 10600 MG (RECENT DOSE ON 11 NOV 2022)
     Route: 042
     Dates: start: 20221110
  13. POLATUZUMAB VEDOTIN [Suspect]
     Active Substance: POLATUZUMAB VEDOTIN
     Indication: Diffuse large B-cell lymphoma
     Dosage: 164 MG
     Route: 042
     Dates: start: 20220916, end: 20220916
  14. POLATUZUMAB VEDOTIN [Suspect]
     Active Substance: POLATUZUMAB VEDOTIN
     Dosage: 164 MG
     Route: 042
     Dates: start: 20221013, end: 20221013
  15. POLATUZUMAB VEDOTIN [Suspect]
     Active Substance: POLATUZUMAB VEDOTIN
     Dosage: 162 MG (RECENT DOSE ON 09 NOV 2022)
     Route: 042
     Dates: start: 20221109
  16. TORSEMIDE [Concomitant]
     Active Substance: TORSEMIDE
     Indication: Oedema
     Dosage: 5 MG, QD
     Route: 065
     Dates: start: 20211001, end: 20221006
  17. CHOLECALCIFEROL [Concomitant]
     Active Substance: CHOLECALCIFEROL
     Indication: Osteoporosis
     Dosage: UNK, QD 20000 IE
     Route: 065
     Dates: start: 20220531
  18. SPIRIVA [Concomitant]
     Active Substance: TIOTROPIUM BROMIDE MONOHYDRATE
     Indication: Chronic obstructive pulmonary disease
     Dosage: 18 UG, QD
     Route: 065
     Dates: start: 20220916

REACTIONS (5)
  - Pancytopenia [Unknown]
  - Pneumonia [Unknown]
  - Coronavirus infection [Unknown]
  - Pneumonia [Unknown]
  - Pyrexia [Unknown]

NARRATIVE: CASE EVENT DATE: 20221102
